FAERS Safety Report 6003549-3 (Version None)
Quarter: 2008Q4

REPORT INFORMATION
  Report Type: 
  Country: None (occurrence: None)
  Receive Date: 20081216
  Receipt Date: 20081202
  Transmission Date: 20090506
  Serious: Yes (Hospitalization, Other)
  Sender: FDA-Public Use
  Company Number: US-ELI_LILLY_AND_COMPANY-US200810002710

PATIENT
  Age: 90 Year
  Sex: Female
  Weight: 56.689 kg

DRUGS (1)
  1. FORTEO [Suspect]
     Dosage: UNK, UNK

REACTIONS (3)
  - FALL [None]
  - HIP FRACTURE [None]
  - OPEN FRACTURE [None]
